FAERS Safety Report 19889631 (Version 1)
Quarter: 2021Q3

REPORT INFORMATION
  Report Type: Spontaneous
  Country: US (occurrence: US)
  Receive Date: 20210928
  Receipt Date: 20210928
  Transmission Date: 20211014
  Serious: Yes (Death)
  Sender: FDA-Public Use
  Company Number: US-ROCHE-2917759

PATIENT
  Age: 78 Year
  Sex: Male
  Weight: 69.92 kg

DRUGS (2)
  1. CELLCEPT [Suspect]
     Active Substance: MYCOPHENOLATE MOFETIL\MYCOPHENOLATE MOFETIL HYDROCHLORIDE
     Indication: RENAL TRANSPLANT
     Dosage: FROM SMN SIGNED 10/20/2020
     Route: 048
     Dates: start: 2013
  2. VALCYTE [Suspect]
     Active Substance: VALGANCICLOVIR HYDROCHLORIDE
     Indication: RENAL TRANSPLANT
     Dosage: FROM MN SIGNED 06/26/2013
     Route: 048

REACTIONS (4)
  - Cerebral haemorrhage [Fatal]
  - Fall [Fatal]
  - Spinal cord compression [Fatal]
  - Off label use [Unknown]

NARRATIVE: CASE EVENT DATE: 20210604
